FAERS Safety Report 5716277-6 (Version None)
Quarter: 2008Q2

REPORT INFORMATION
  Report Type: 
  Country: None (occurrence: None)
  Receive Date: 20080424
  Receipt Date: 20080414
  Transmission Date: 20081010
  Serious: Yes (Life-Threatening, Hospitalization)
  Sender: FDA-Public Use
  Company Number: B0516758A

PATIENT
  Age: 73 Year
  Sex: Female

DRUGS (4)
  1. ZOPHREN [Suspect]
     Indication: PREMEDICATION
     Dosage: 8MG SINGLE DOSE
     Route: 042
     Dates: start: 20071114, end: 20071114
  2. PARAPLATIN [Suspect]
     Indication: OVARIAN CANCER METASTATIC
     Dosage: 350MG SINGLE DOSE
     Route: 042
     Dates: start: 20071114, end: 20071114
  3. SOLU-MEDROL [Suspect]
     Indication: PREMEDICATION
     Dosage: 120MG SINGLE DOSE
     Route: 042
     Dates: start: 20071114, end: 20071114
  4. PLITICAN [Suspect]
     Indication: PREMEDICATION
     Dosage: 1UNIT SINGLE DOSE
     Route: 042
     Dates: start: 20071114, end: 20071114

REACTIONS (4)
  - CARDIO-RESPIRATORY ARREST [None]
  - CARDIOGENIC SHOCK [None]
  - PULSE ABNORMAL [None]
  - SOMNOLENCE [None]
